FAERS Safety Report 6239034-3 (Version None)
Quarter: 2009Q2

REPORT INFORMATION
  Report Type: 
  Country: None (occurrence: None)
  Receive Date: 20090622
  Receipt Date: 20090610
  Transmission Date: 20091009
  Serious: Yes (Other)
  Sender: FDA-Public Use
  Company Number: PHHY2009BR23170

PATIENT
  Age: 80 Year
  Sex: Male
  Weight: 71 kg

DRUGS (1)
  1. FORASEQ [Suspect]
     Indication: BRONCHITIS
     Dosage: ONE INHALATION DAILY WITH EACH ACTIVE COMPOUND
     Dates: start: 20080101

REACTIONS (4)
  - CATARACT OPERATION [None]
  - DRUG ADMINISTRATION ERROR [None]
  - EYE DISORDER [None]
  - SUTURE INSERTION [None]
